FAERS Safety Report 5930345-5 (Version None)
Quarter: 2008Q4

REPORT INFORMATION
  Report Type: 
  Country: None (occurrence: None)
  Receive Date: 20081023
  Receipt Date: 20081010
  Transmission Date: 20090506
  Serious: Yes (Life-Threatening, Hospitalization, Disabling, Other)
  Sender: FDA-Public Use
  Company Number: FABR-1000387

PATIENT
  Age: 56 Year
  Sex: Male
  Weight: 82 kg

DRUGS (3)
  1. FABRAZYME [Suspect]
     Indication: FABRY'S DISEASE
     Dosage: 75 MG,Q2W,INTRAVENOUS
     Route: 042
     Dates: start: 20061006
  2. ENALAPRIL MALEATE AND HYDROCHLOROTHIAZIDE [Concomitant]
  3. OLMETEC (OLMESARTAN MEDOXOMIL) [Concomitant]

REACTIONS (8)
  - ABDOMINAL DISCOMFORT [None]
  - BLOOD PRESSURE FLUCTUATION [None]
  - DISEASE PROGRESSION [None]
  - DYSPNOEA [None]
  - EPIGASTRIC DISCOMFORT [None]
  - GENERAL PHYSICAL HEALTH DETERIORATION [None]
  - PSYCHOMOTOR SKILLS IMPAIRED [None]
  - TACHYCARDIA [None]
